FAERS Safety Report 6462950-4 (Version None)
Quarter: 2009Q4

REPORT INFORMATION
  Report Type: 
  Country: None (occurrence: None)
  Receive Date: 20091130
  Receipt Date: 20091118
  Transmission Date: 20100525
  Serious: Yes (Other)
  Sender: FDA-Public Use
  Company Number: GB-BAUSCH-2009BL006178

PATIENT
  Age: 69 Year
  Sex: Female

DRUGS (5)
  1. PREDNISOLONE [Suspect]
     Indication: LICHEN SCLEROSUS
     Dates: start: 19930101, end: 19990101
  2. CYCLOSPORINE [Suspect]
     Indication: LICHEN SCLEROSUS
     Dates: start: 19980101, end: 19980101
  3. METHYLPREDNISOLONE [Suspect]
     Indication: LICHEN SCLEROSUS
     Dates: start: 19980101, end: 19980101
  4. MYCOPHENOLATE MOFETIL [Suspect]
     Indication: LICHEN SCLEROSUS
     Dates: start: 20000101, end: 20010101
  5. PSORALENS FOR TOPICAL USE [Suspect]
     Indication: LICHEN SCLEROSUS
     Route: 061
     Dates: start: 19960101, end: 19960101

REACTIONS (1)
  - SQUAMOUS CELL CARCINOMA [None]
